FAERS Safety Report 20560864 (Version 1)
Quarter: 2022Q1

REPORT INFORMATION
  Report Type: Spontaneous
  Country: US (occurrence: US)
  Receive Date: 20220307
  Receipt Date: 20220307
  Transmission Date: 20220423
  Serious: No
  Sender: FDA-Public Use
  Company Number: US-SA-SAC20220228000386

PATIENT
  Sex: Male

DRUGS (10)
  1. DUPIXENT [Suspect]
     Active Substance: DUPILUMAB
     Indication: Dermatitis atopic
     Dosage: 300 MG, QOW
     Route: 058
     Dates: start: 20210624
  2. ADVAIR HFA [Concomitant]
     Active Substance: FLUTICASONE PROPIONATE\SALMETEROL XINAFOATE
  3. CETIRIZINE HCL [Concomitant]
     Active Substance: CETIRIZINE HYDROCHLORIDE
  4. CLOTRIMAZOLE [Concomitant]
     Active Substance: CLOTRIMAZOLE
  5. EUCRISA [Concomitant]
     Active Substance: CRISABOROLE
  6. MOMETASONE [Concomitant]
     Active Substance: MOMETASONE
  7. NASONEX [Concomitant]
     Active Substance: MOMETASONE FUROATE
  8. OLOPATADINE [Concomitant]
     Active Substance: OLOPATADINE
  9. PREDNISONE [Concomitant]
     Active Substance: PREDNISONE
  10. DERMA SMOOTH [Concomitant]

REACTIONS (2)
  - Dry eye [Not Recovered/Not Resolved]
  - Dermatitis atopic [Not Recovered/Not Resolved]
